FAERS Safety Report 18532778 (Version 1)
Quarter: 2020Q4

REPORT INFORMATION
  Report Type: Report from Study
  Country: US (occurrence: US)
  Receive Date: 20201123
  Receipt Date: 20201123
  Transmission Date: 20210114
  Serious: No
  Sender: FDA-Public Use
  Company Number: US-BIOVITRUM-2020US4105

PATIENT
  Sex: Female

DRUGS (14)
  1. LEVOTHYROXINE. [Concomitant]
     Active Substance: LEVOTHYROXINE
  2. POTASSIUM CHLORIDE. [Concomitant]
     Active Substance: POTASSIUM CHLORIDE
  3. WARFARIN [Concomitant]
     Active Substance: WARFARIN
  4. IBUPROFEN. [Concomitant]
     Active Substance: IBUPROFEN
  5. PREDNISONE. [Concomitant]
     Active Substance: PREDNISONE
  6. TIKOSYN [Concomitant]
     Active Substance: DOFETILIDE
  7. FUROSEMIDE. [Concomitant]
     Active Substance: FUROSEMIDE
  8. KINERET [Suspect]
     Active Substance: ANAKINRA
     Indication: PRODUCT USED FOR UNKNOWN INDICATION
     Route: 058
     Dates: start: 20200730
  9. BYSTOLIC [Concomitant]
     Active Substance: NEBIVOLOL HYDROCHLORIDE
  10. IRBASARTAN [Concomitant]
     Active Substance: IRBESARTAN
  11. FAMOTIDINE. [Concomitant]
     Active Substance: FAMOTIDINE
  12. CALCIUM LACTATE [Concomitant]
     Active Substance: CALCIUM LACTATE
  13. PROBENACID [Concomitant]
  14. COLCHICINE. [Concomitant]
     Active Substance: COLCHICINE

REACTIONS (11)
  - Gastrointestinal disorder [Unknown]
  - Injection site pain [Recovering/Resolving]
  - Joint swelling [Unknown]
  - Injection site reaction [Unknown]
  - Nausea [Unknown]
  - Abdominal pain [Unknown]
  - Injection site erythema [Unknown]
  - Abdominal pain upper [Unknown]
  - Arthralgia [Unknown]
  - Injection site rash [Recovering/Resolving]
  - Injection site discolouration [Recovered/Resolved]
